FAERS Safety Report 4993193-9 (Version None)
Quarter: 2006Q1

REPORT INFORMATION
  Report Type: 
  Country: None (occurrence: None)
  Receive Date: 20060313
  Receipt Date: 20051129
  Transmission Date: 20060701
  Serious: No
  Sender: FDA-Public Use
  Company Number: 2005-BP-19129BP

PATIENT
  Age: 53 Year
  Sex: Male
  Weight: 151.9 kg

DRUGS (1)
  1. SPIRIVA [Suspect]
     Dosage: (18 MCG), IH
     Route: 055
     Dates: end: 20051001

REACTIONS (2)
  - DYSPNOEA [None]
  - DYSPNOEA EXACERBATED [None]
